FAERS Safety Report 26056320 (Version 2)
Quarter: 2025Q4

REPORT INFORMATION
  Report Type: Spontaneous
  Country: JP (occurrence: JP)
  Receive Date: 20251118
  Receipt Date: 20251201
  Transmission Date: 20260117
  Serious: Yes (Other)
  Sender: BOEHRINGER INGELHEIM
  Company Number: JP-NBI-2025-BI-106768

PATIENT
  Age: 71 Year
  Sex: Male

DRUGS (1)
  1. GILOTRIF [Suspect]
     Active Substance: AFATINIB
     Indication: Adenocarcinoma

REACTIONS (2)
  - Lung opacity [Unknown]
  - Lung adenocarcinoma recurrent [Recovered/Resolved]
